FAERS Safety Report 9511759 (Version 1)
Quarter: 2013Q3

REPORT INFORMATION
  Report Type: Spontaneous
  Country: US (occurrence: None)
  Receive Date: 20130909
  Receipt Date: 20130909
  Transmission Date: 20140515
  Serious: Yes (Life-Threatening, Disabling, Other)
  Sender: FDA-Public Use
  Company Number: None

PATIENT
  Age: 86 Year
  Sex: Male
  Weight: 77.11 kg

DRUGS (1)
  1. SIMVASTATIN [Suspect]
     Indication: PAIN IN EXTREMITY
     Route: 048
     Dates: start: 20130414, end: 20130902

REACTIONS (6)
  - Fall [None]
  - Abasia [None]
  - Muscle disorder [None]
  - Tendon disorder [None]
  - Balance disorder [None]
  - Activities of daily living impaired [None]
